FAERS Safety Report 8808178 (Version 1)
Quarter: 2012Q4

REPORT INFORMATION
  Report Type: Report from Study
  Country: AU (occurrence: AU)
  Receive Date: 20120925
  Receipt Date: 20120925
  Transmission Date: 20130627
  Serious: Yes (Life-Threatening, Hospitalization, Other)
  Sender: FDA-Public Use
  Company Number: AU-ASTRAZENECA-2012SE73640

PATIENT
  Age: 0 Day
  Sex: Female
  Weight: 3.8 kg

DRUGS (7)
  1. SEROQUEL XR [Suspect]
     Indication: PSYCHOTIC DISORDER
     Dosage: INITIATED PRE-PREGNANCY AND STOPPED AT DELIVERY
     Route: 064
  2. THYROXINE [Concomitant]
     Indication: THYROID THERAPY
     Dosage: 900 MCG PER WEEK, INITIATED PRE-PREGNANCY AND STOPPED AT DELIVERY
     Route: 064
  3. SULPHASALAZINE [Concomitant]
     Indication: INFLAMMATORY BOWEL DISEASE
     Dosage: 500 MG DAILY, INITIATED PRE-PREGNANCY AND STOPPED AT DELIVERY
     Route: 064
  4. VALIUM [Concomitant]
     Indication: SEDATION
     Dosage: 10 MG, AS REQUIRED, INITIATED PRE-PREGNANCY AND STOPPED AT DELIVERY
     Route: 064
  5. VALIUM [Concomitant]
     Indication: ANXIETY
     Dosage: 10 MG, AS REQUIRED, INITIATED PRE-PREGNANCY AND STOPPED AT DELIVERY
     Route: 064
  6. BLACKMORES P+BF [Concomitant]
     Indication: VITAMIN SUPPLEMENTATION
     Dosage: 2 TAB PER DAY,  INITIATED AT FIRST TRIMESTER AND STOPPED AT DELIVERY
     Route: 064
  7. FOLATE [Concomitant]
     Indication: PROPHYLAXIS OF NEURAL TUBE DEFECT
     Dosage: 0.5 MG PER DAY, INITIATED AT FIRST TRIMESTER AND STOPPED AT END OF FIRST TRIMESTER
     Route: 064

REACTIONS (3)
  - Foetal distress syndrome [Recovered/Resolved]
  - Respiratory distress [Recovered/Resolved]
  - Withdrawal syndrome [Recovered/Resolved]
